FAERS Safety Report 14382120 (Version 2)
Quarter: 2018Q1

REPORT INFORMATION
  Report Type: Report from Study
  Country: JP (occurrence: JP)
  Receive Date: 20180112
  Receipt Date: 20180130
  Transmission Date: 20180509
  Serious: Yes (Hospitalization)
  Sender: FDA-Public Use
  Company Number: PHHO2012JP003962

PATIENT
  Age: 10 Year
  Sex: Female
  Weight: 52 kg

DRUGS (6)
  1. TRI476 [Suspect]
     Active Substance: OXCARBAZEPINE
     Dosage: 300 MG, 6QD
     Route: 048
     Dates: start: 20121105
  2. TRI476 [Suspect]
     Active Substance: OXCARBAZEPINE
     Dosage: 300 MG, QID
     Route: 048
     Dates: start: 20121106
  3. TRI476 [Suspect]
     Active Substance: OXCARBAZEPINE
     Indication: PARTIAL SEIZURES
     Dosage: 300 MG, QID
     Route: 048
     Dates: start: 20110818
  4. TRI476 [Suspect]
     Active Substance: OXCARBAZEPINE
     Dosage: 300 MG, QID
     Route: 048
     Dates: start: 20150217
  5. DEPAKENE [Concomitant]
     Active Substance: VALPROIC ACID
     Indication: EPILEPSY
     Dosage: 400 MG, UNK
     Route: 048
     Dates: start: 20091027
  6. LAMICTAL [Concomitant]
     Active Substance: LAMOTRIGINE
     Indication: EPILEPSY
     Dosage: 180 MG, UNK
     Route: 048
     Dates: start: 20110106

REACTIONS (2)
  - Status epilepticus [Recovered/Resolved]
  - Seizure [Recovered/Resolved]

NARRATIVE: CASE EVENT DATE: 20120229
